FAERS Safety Report 20096339 (Version 1)
Quarter: 2021Q4

REPORT INFORMATION
  Report Type: Spontaneous
  Country: US (occurrence: None)
  Receive Date: 20211119
  Receipt Date: 20211119
  Transmission Date: 20220303
  Serious: Yes (Hospitalization)
  Sender: FDA-Public Use
  Company Number: None

PATIENT
  Age: 31 Year
  Sex: Male
  Weight: 108.45 kg

DRUGS (6)
  1. CLOZAPINE [Suspect]
     Active Substance: CLOZAPINE
     Indication: Schizophrenia
     Dosage: FREQUENCY : AT BEDTIME;?
     Route: 048
     Dates: start: 20210625, end: 20211111
  2. Amlodipine 10mg PO QDaily [Concomitant]
     Dates: start: 20211006
  3. Cyclobenzaprine 5mg PO TID [Concomitant]
     Dates: start: 20210721
  4. Escitalopram 20mg PO QAM [Concomitant]
     Dates: start: 20210511
  5. Quetiapine 400mg PO QHS [Concomitant]
     Dates: start: 20210721
  6. Quetiapine 100mg PO QHS [Concomitant]
     Dates: start: 20210721

REACTIONS (1)
  - Pericarditis [None]

NARRATIVE: CASE EVENT DATE: 20211111
